FAERS Safety Report 11228535 (Version 1)
Quarter: 2015Q2

REPORT INFORMATION
  Report Type: Spontaneous
  Country: IT (occurrence: IT)
  Receive Date: 20150630
  Receipt Date: 20150630
  Transmission Date: 20150821
  Serious: Yes (Death, Hospitalization, Other)
  Sender: FDA-Public Use
  Company Number: IT-GILEAD-2015-0160814

PATIENT
  Age: 40 Year
  Sex: Female

DRUGS (2)
  1. DACLATASVIR [Suspect]
     Active Substance: DACLATASVIR
     Indication: HEPATITIS C
     Dosage: 60 MG, QD
     Route: 048
     Dates: start: 20150331, end: 20150509
  2. SOVALDI [Suspect]
     Active Substance: SOFOSBUVIR
     Indication: HEPATITIS C
     Dosage: 400 MG, QD
     Route: 048
     Dates: start: 20150331, end: 20150509

REACTIONS (8)
  - Progressive multifocal leukoencephalopathy [Fatal]
  - Hepatic cirrhosis [Fatal]
  - Encephalopathy [Unknown]
  - Coma [Fatal]
  - Presyncope [Unknown]
  - Spinal compression fracture [Unknown]
  - Fall [Unknown]
  - Back pain [Unknown]

NARRATIVE: CASE EVENT DATE: 20150423
